FAERS Safety Report 9013393 (Version 1)
Quarter: 2013Q1

REPORT INFORMATION
  Report Type: Spontaneous
  Country: US (occurrence: US)
  Receive Date: 20130114
  Receipt Date: 20130114
  Transmission Date: 20140127
  Serious: Yes (Other)
  Sender: FDA-Public Use
  Company Number: US-BAYER-2013-003360

PATIENT
  Age: 26 Year
  Sex: Female

DRUGS (3)
  1. YAZ [Suspect]
     Indication: CONTRACEPTION
  2. HYDROCODONE COMPOUND [Concomitant]
  3. CIPROFLOXACIN HCL [Concomitant]
     Dosage: 500 MG, UNK

REACTIONS (1)
  - Pulmonary embolism [None]
